FAERS Safety Report 6541110-2 (Version None)
Quarter: 2010Q1

REPORT INFORMATION
  Report Type: 
  Country: None (occurrence: None)
  Receive Date: 20100118
  Receipt Date: 20100106
  Transmission Date: 20100710
  Serious: No
  Sender: FDA-Public Use
  Company Number: US-BAYER-200943856NA

PATIENT
  Age: 31 Year
  Sex: Male

DRUGS (1)
  1. ULTRAVIST 150 [Suspect]
     Indication: COMPUTERISED TOMOGRAM
     Dates: start: 20091214, end: 20091214

REACTIONS (2)
  - CHEST DISCOMFORT [None]
  - OCULAR HYPERAEMIA [None]
